FAERS Safety Report 24553139 (Version 2)
Quarter: 2025Q3

REPORT INFORMATION
  Report Type: Spontaneous
  Country: US (occurrence: US)
  Receive Date: 20241028
  Receipt Date: 20250903
  Transmission Date: 20251020
  Serious: No
  Sender: CHIESI
  Company Number: US-CHIESI-2024CHF05224

PATIENT
  Age: 5 Year
  Sex: Male
  Weight: 17 kg

DRUGS (7)
  1. FERRIPROX [Suspect]
     Active Substance: DEFERIPRONE
     Indication: Haemochromatosis
     Dosage: 4.1 MILLILITER, TID
     Route: 048
     Dates: start: 20230415
  2. FERRIPROX [Suspect]
     Active Substance: DEFERIPRONE
     Indication: Red blood cell transfusion
     Dosage: 5.5 MILLILITER, TID
     Route: 048
     Dates: start: 20230722
  3. FERRIPROX [Suspect]
     Active Substance: DEFERIPRONE
     Indication: Haemoglobin E-thalassaemia disease
     Dosage: 6.5 MILLILITER, TID
     Route: 048
     Dates: start: 20240315
  4. FERRIPROX [Suspect]
     Active Substance: DEFERIPRONE
     Dosage: 7 MILLILITER, TID
     Route: 048
     Dates: start: 20240618, end: 2024
  5. FERRIPROX [Suspect]
     Active Substance: DEFERIPRONE
     Dosage: 5 MILLILITER, TID
     Route: 048
     Dates: start: 2024
  6. FOLIC ACID [Concomitant]
     Active Substance: FOLIC ACID
     Indication: Product used for unknown indication
  7. VITAMINS [Concomitant]
     Active Substance: VITAMINS
     Indication: Product used for unknown indication

REACTIONS (7)
  - Hepatic enzyme increased [Recovered/Resolved]
  - Blood creatinine increased [Recovered/Resolved]
  - Carbon dioxide increased [Unknown]
  - Blood chloride increased [Recovered/Resolved]
  - Off label use [Recovered/Resolved]
  - Off label use [Recovered/Resolved]
  - Prescribed overdose [Recovered/Resolved]

NARRATIVE: CASE EVENT DATE: 20230415
